FAERS Safety Report 17064874 (Version 2)
Quarter: 2019Q4

REPORT INFORMATION
  Report Type: Spontaneous
  Country: DE (occurrence: DE)
  Receive Date: 20191122
  Receipt Date: 20191208
  Transmission Date: 20200122
  Serious: Yes (Hospitalization, Other)
  Sender: FDA-Public Use
  Company Number: NVSC2019DE043892

PATIENT
  Age: 47 Year
  Sex: Female

DRUGS (16)
  1. IRINOTECAN [Suspect]
     Active Substance: IRINOTECAN
     Indication: PANCREATIC CARCINOMA
     Dosage: 12 CYCLES
     Route: 065
  2. COLIBIOGEN [Concomitant]
     Indication: PRODUCT USED FOR UNKNOWN INDICATION
     Dosage: 2X1 TABLESPOONS QD
     Route: 048
  3. SODIUM SELENITE [Concomitant]
     Active Substance: SODIUM SELENITE
     Dosage: 138 UG, QD
     Route: 065
  4. L CARNITIN [Concomitant]
     Indication: PRODUCT USED FOR UNKNOWN INDICATION
     Dosage: 4 G SHORT INFUSION
     Route: 041
  5. CALCIUM FOLINATE [Suspect]
     Active Substance: LEUCOVORIN CALCIUM
     Indication: PANCREATIC CARCINOMA
     Dosage: 12 CYCLES
     Route: 065
  6. FLUOROURACIL. [Suspect]
     Active Substance: FLUOROURACIL
     Indication: PANCREATIC CARCINOMA
     Dosage: 12 CYCLES
     Route: 065
  7. OXALIPLATIN. [Suspect]
     Active Substance: OXALIPLATIN
     Indication: PANCREATIC CARCINOMA
     Dosage: 12 CYCLES
     Route: 065
  8. SODIUM SELENITE [Concomitant]
     Active Substance: SODIUM SELENITE
     Dosage: UNK
     Route: 065
  9. SODIUM SELENITE [Concomitant]
     Active Substance: SODIUM SELENITE
     Indication: SELENIUM DEFICIENCY
     Dosage: 300 UG, QD
     Route: 065
  10. TIROFIBAN [Suspect]
     Active Substance: TIROFIBAN
     Indication: PRODUCT USED FOR UNKNOWN INDICATION
     Dosage: UNK
     Route: 065
  11. LIPEGFILGRASTIM [Concomitant]
     Active Substance: LIPEGFILGRASTIM
     Indication: LEUKOPENIA
     Route: 065
  12. ENOXAPARIN SODIUM. [Concomitant]
     Active Substance: ENOXAPARIN SODIUM
     Indication: THROMBOCYTOSIS
     Dosage: UNK
     Route: 065
  13. CHOLECALCIFEROL [Concomitant]
     Active Substance: CHOLECALCIFEROL
     Indication: VITAMIN D DEFICIENCY
     Dosage: 3000 IU, QD
     Route: 065
  14. CHOLECALCIFEROL [Concomitant]
     Active Substance: CHOLECALCIFEROL
     Dosage: 48.7 UG, QD
     Route: 065
  15. FOLINIC ACID [Concomitant]
     Active Substance: LEUCOVORIN
     Indication: PANCREATIC CARCINOMA
     Dosage: UNK
     Route: 065
  16. FILGRASTIM [Concomitant]
     Active Substance: FILGRASTIM
     Indication: NEUTROPENIA
     Dosage: UNK
     Route: 065

REACTIONS (4)
  - Troponin increased [Unknown]
  - Embolism [Unknown]
  - Acute coronary syndrome [Recovered/Resolved]
  - ECG signs of myocardial infarction [Unknown]
